FAERS Safety Report 11926587 (Version 1)
Quarter: 2016Q1

REPORT INFORMATION
  Report Type: Spontaneous
  Country: DE (occurrence: DE)
  Receive Date: 20160119
  Receipt Date: 20160119
  Transmission Date: 20160526
  Serious: Yes (Other)
  Sender: FDA-Public Use
  Company Number: DE-WATSON-2016-00645

PATIENT
  Sex: Female

DRUGS (1)
  1. SIMVASTATIN (UNKNOWN) [Suspect]
     Active Substance: SIMVASTATIN
     Indication: CEREBROVASCULAR ACCIDENT
     Dosage: UNK, UNKNOWN
     Route: 048
     Dates: start: 200606, end: 20151123

REACTIONS (7)
  - Dysphagia [Recovering/Resolving]
  - Abdominal discomfort [Recovered/Resolved]
  - Visual impairment [Recovering/Resolving]
  - Cardiac discomfort [Recovering/Resolving]
  - Headache [Recovered/Resolved]
  - Memory impairment [Recovering/Resolving]
  - Myalgia [Recovering/Resolving]
